FAERS Safety Report 16021838 (Version 1)
Quarter: 2019Q1

REPORT INFORMATION
  Report Type: Spontaneous
  Country: US (occurrence: US)
  Receive Date: 20190201
  Receipt Date: 20190201
  Transmission Date: 20190418
  Serious: No
  Sender: FDA-Public Use
  Company Number: None

PATIENT
  Age: 66 Year
  Sex: Female

DRUGS (1)
  1. ODEFSEY [Suspect]
     Active Substance: EMTRICITABINE\RILPIVIRINE HYDROCHLORIDE\TENOFOVIR ALAFENAMIDE FUMARATE
     Dates: start: 201811

REACTIONS (5)
  - Pruritus [None]
  - Urticaria [None]
  - Alopecia [None]
  - Skin disorder [None]
  - Rash generalised [None]

NARRATIVE: CASE EVENT DATE: 20181227
